FAERS Safety Report 6633180-8 (Version None)
Quarter: 2010Q1

REPORT INFORMATION
  Report Type: 
  Country: None (occurrence: None)
  Receive Date: 20100312
  Receipt Date: 20100305
  Transmission Date: 20100710
  Serious: Yes (Hospitalization)
  Sender: FDA-Public Use
  Company Number: PHHY2010JP08315

PATIENT
  Age: 50 Year
  Sex: Male
  Weight: 73 kg

DRUGS (12)
  1. NATEGLINIDE [Suspect]
     Indication: DIABETES MELLITUS
  2. INSULIN [Concomitant]
  3. LOSARTAN POTASSIUM [Concomitant]
     Dosage: 50 MG, PER DAY
  4. VERAPAMIL HCL [Concomitant]
     Dosage: 80 MG, PER DAY
  5. CILOSTAZOL [Concomitant]
     Dosage: 200 MG, PER DAY
  6. ALLOPURINOL [Concomitant]
     Dosage: 100 MG, PER DAY
  7. RANITIDINE HYDROCHLORIDE [Concomitant]
     Dosage: 150 MG, PER DAY
  8. THIAMAZOLE [Concomitant]
     Dosage: 2.5 MG, PER DAY
  9. BISOPROLOL FUMARATE [Concomitant]
     Dosage: 5 MG, PER DAY
  10. FUROSEMIDE [Concomitant]
     Dosage: 40 MG, PER DAY
  11. SPIRONOLACTONE [Concomitant]
     Dosage: 25 MG, PER DAY
  12. WARFARIN POTASSIUM [Concomitant]
     Dosage: 2 MG, PER DAY

REACTIONS (18)
  - ALTERED STATE OF CONSCIOUSNESS [None]
  - ANAEMIA [None]
  - DEHYDRATION [None]
  - DIABETIC NEUROPATHY [None]
  - DIARRHOEA [None]
  - FATIGUE [None]
  - HEPATIC FUNCTION ABNORMAL [None]
  - HYPOAESTHESIA [None]
  - HYPOGLYCAEMIA [None]
  - HYPOGLYCAEMIC COMA [None]
  - HYPOPHAGIA [None]
  - HYPOREFLEXIA [None]
  - HYPOTHYROIDISM [None]
  - MALAISE [None]
  - METABOLIC ACIDOSIS [None]
  - RENAL IMPAIRMENT [None]
  - RESPIRATORY DISTRESS [None]
  - VOMITING [None]
